FAERS Safety Report 6133598-6 (Version None)
Quarter: 2009Q1

REPORT INFORMATION
  Report Type: 
  Country: None (occurrence: None)
  Receive Date: 20090324
  Receipt Date: 20090311
  Transmission Date: 20090719
  Serious: Yes (Other)
  Sender: FDA-Public Use
  Company Number: 2009AL001466

PATIENT
  Age: 61 Year
  Sex: Female

DRUGS (1)
  1. AMLODIPINE BESYLATE [Suspect]
     Indication: HYPERTENSION
     Dosage: 5 MG; PO
     Route: 048
     Dates: start: 20080319, end: 20080419

REACTIONS (4)
  - CONFUSIONAL STATE [None]
  - FEELING ABNORMAL [None]
  - MEMORY IMPAIRMENT [None]
  - PRODUCT QUALITY ISSUE [None]
